FAERS Safety Report 4371423-4 (Version None)
Quarter: 2004Q2

REPORT INFORMATION
  Report Type: 
  Country: None (occurrence: None)
  Receive Date: 20040601
  Receipt Date: 20040216
  Transmission Date: 20050107
  Serious: No
  Sender: FDA-Public Use
  Company Number: 701647

PATIENT
  Age: 29 Year
  Sex: Female
  Weight: 61.2356 kg

DRUGS (1)
  1. AMEVIVE [Suspect]
     Indication: PSORIASIS
     Dosage: 15 MG QW IM
     Route: 030
     Dates: start: 20040205, end: 20040211

REACTIONS (2)
  - HERPES SIMPLEX [None]
  - RASH PRURITIC [None]
